FAERS Safety Report 5253675-1 (Version None)
Quarter: 2007Q1

REPORT INFORMATION
  Report Type: 
  Country: None (occurrence: None)
  Receive Date: 20070301
  Receipt Date: 20070219
  Transmission Date: 20070707
  Serious: Yes (Hospitalization)
  Sender: FDA-Public Use
  Company Number: FR-PFIZER INC-2007014731

PATIENT
  Age: 80 Year
  Sex: Male

DRUGS (6)
  1. ATARAX [Suspect]
     Dosage: DAILY DOSE:100MG
     Route: 048
     Dates: start: 20070121, end: 20070122
  2. PROPOFOL [Suspect]
     Dosage: DAILY DOSE:90MG
     Route: 042
     Dates: start: 20070121, end: 20070121
  3. OMEPRAZOLE [Suspect]
     Dosage: DAILY DOSE:20MG
     Route: 048
     Dates: start: 20070124, end: 20070127
  4. TRAMADOL HYDROCHLORIDE [Suspect]
     Dosage: DAILY DOSE:50MG
     Route: 048
     Dates: start: 20070125, end: 20070125
  5. NEFOPAM HYDROCHLORIDE [Suspect]
     Dosage: TEXT:3 DF
     Route: 042
     Dates: start: 20070122, end: 20070125
  6. KETOPROFEN [Suspect]
     Dosage: DAILY DOSE:100MG
     Route: 048
     Dates: start: 20070124, end: 20070124

REACTIONS (2)
  - PRURITUS [None]
  - RASH MACULAR [None]
